FAERS Safety Report 6519706-3 (Version None)
Quarter: 2009Q4

REPORT INFORMATION
  Report Type: 
  Country: None (occurrence: None)
  Receive Date: 20091228
  Receipt Date: 20091216
  Transmission Date: 20100525
  Serious: Yes (Other)
  Sender: FDA-Public Use
  Company Number: FR-PFIZER INC-2009310873

PATIENT
  Age: 58 Year
  Sex: Male

DRUGS (12)
  1. CAMPTOSAR [Suspect]
     Indication: BILE DUCT CANCER
     Dosage: UNK
     Route: 042
     Dates: start: 20081103, end: 20091117
  2. FLUOROURACIL [Suspect]
     Indication: BILE DUCT CANCER
     Dosage: UNK
     Route: 042
     Dates: start: 20081103, end: 20081117
  3. CALCIUM FOLINATE [Concomitant]
  4. ZOPHREN [Concomitant]
     Dosage: 8 MG, UNK
  5. SOLUPRED [Concomitant]
     Dosage: 20 MG, UNK
  6. PRIMPERAN TAB [Concomitant]
  7. DOMPERIDONE [Concomitant]
  8. SOPHIDONE [Concomitant]
     Dosage: 16 MG, UNK
  9. NEXIUM [Concomitant]
     Dosage: 40 MG, UNK
  10. ACTISKENAN [Concomitant]
     Dosage: 20 MG, UNK
  11. LACTULOSE [Concomitant]
  12. TRIMEBUTINE [Concomitant]
     Dosage: 100 MG, UNK

REACTIONS (3)
  - APLASIA [None]
  - CONFUSIONAL STATE [None]
  - HYPOKALAEMIA [None]
